FAERS Safety Report 12731645 (Version 1)
Quarter: 2016Q3

REPORT INFORMATION
  Report Type: Spontaneous
  Country: US (occurrence: US)
  Receive Date: 20160908
  Receipt Date: 20160908
  Transmission Date: 20161109
  Serious: No
  Sender: FDA-Public Use
  Company Number: None

PATIENT
  Age: 56 Year
  Sex: Female

DRUGS (10)
  1. BEVACIZUMAB 25MG/ML GENENTECH [Suspect]
     Active Substance: BEVACIZUMAB
     Indication: PANCREATIC NEUROENDOCRINE TUMOUR METASTATIC
     Dosage: DAY 1 + 15
     Route: 042
     Dates: start: 20160316, end: 20160629
  2. CAPECITABINE 500MG GENENTECH [Suspect]
     Active Substance: CAPECITABINE
     Indication: PANCREATIC NEUROENDOCRINE TUMOUR METASTATIC
     Dosage: 750 MG/M^2    DAY 1-14
     Route: 048
     Dates: start: 20160316, end: 20160707
  3. LOSARTAN-HYDROCHLOROTHIAZIDE [Concomitant]
     Active Substance: HYDROCHLOROTHIAZIDE\LOSARTAN
  4. OMEPRAZOLE. [Concomitant]
     Active Substance: OMEPRAZOLE
  5. AMLODIPINE [Concomitant]
     Active Substance: AMLODIPINE BESYLATE
  6. POLYETHYLENE GLYCOL [Concomitant]
     Active Substance: POLYETHYLENE GLYCOLS
  7. RANITIDINE. [Concomitant]
     Active Substance: RANITIDINE
  8. TEMOZOLOMIDE 100MG MERCK [Suspect]
     Active Substance: TEMOZOLOMIDE
     Indication: PANCREATIC NEUROENDOCRINE TUMOUR METASTATIC
     Dosage: 200MG/M^2  DAY 10-14
     Route: 048
     Dates: start: 20160316, end: 20160523
  9. METOCLOPRAMIDE. [Concomitant]
     Active Substance: METOCLOPRAMIDE
  10. ONDANSETRON [Concomitant]
     Active Substance: ONDANSETRON

REACTIONS (6)
  - Haemoglobin decreased [None]
  - Small intestinal haemorrhage [None]
  - Haematemesis [None]
  - Nausea [None]
  - Vomiting [None]
  - Duodenal ulcer [None]

NARRATIVE: CASE EVENT DATE: 20160707
